FAERS Safety Report 9408051 (Version 1)
Quarter: 2013Q3

REPORT INFORMATION
  Report Type: Spontaneous
  Country: FR (occurrence: None)
  Receive Date: 20130716
  Receipt Date: 20130716
  Transmission Date: 20140515
  Serious: Yes (Hospitalization)
  Sender: FDA-Public Use
  Company Number: SYM-2013-06227

PATIENT
  Age: 31 Year
  Sex: Male

DRUGS (6)
  1. FLAGYL (METRONIDAZOLE) (500 MILLIGRAM) (METRONIDAZOLE) [Suspect]
     Dates: start: 20130522, end: 20130612
  2. TIENAM [Suspect]
     Dates: start: 20130522, end: 20130612
  3. ZYVOXID (LINEZOLID) (LINEZOLID) [Concomitant]
  4. CLOPIXOL (ZUCLOPENTHIXOL HYDROCHLORIDE) (ZUCLOPENTHIXOL HYDROCHLORIDE) [Concomitant]
  5. PARKINANE (TRIHEXYPHENIDYL HYDROCHLORIDE) (TRIHEXYPHENIDYL HYDROCHLORIDE) [Concomitant]
  6. TAZOCILLINE (PIP/TAZO) (PIPERACILLIN SODIUM, TAZOBACTAM SODIUM) [Concomitant]

REACTIONS (2)
  - Disease recurrence [None]
  - Neutropenia [None]
